FAERS Safety Report 9617183 (Version 1)
Quarter: 2013Q4

REPORT INFORMATION
  Report Type: Spontaneous
  Country: US (occurrence: US)
  Receive Date: 20131011
  Receipt Date: 20131011
  Transmission Date: 20140711
  Serious: No
  Sender: FDA-Public Use
  Company Number: US-BAYER-2013-123060

PATIENT
  Age: 52 Year
  Sex: Female
  Weight: 95.24 kg

DRUGS (2)
  1. ALEVE CAPLET [Suspect]
     Indication: BACK PAIN
     Dosage: 2 DF, ONCE
     Route: 048
     Dates: start: 20131004, end: 20131004
  2. SYNTHROID [Concomitant]

REACTIONS (1)
  - Drug effect delayed [None]
